FAERS Safety Report 24033869 (Version 3)
Quarter: 2024Q3

REPORT INFORMATION
  Report Type: Spontaneous
  Country: ES (occurrence: ES)
  Receive Date: 20240701
  Receipt Date: 20240726
  Transmission Date: 20241016
  Serious: Yes (Hospitalization, Other)
  Sender: AUROBINDO
  Company Number: ES-PFIZER INC-202400196031

PATIENT
  Age: 68 Year
  Sex: Female
  Weight: 50.1 kg

DRUGS (5)
  1. IRINOTECAN [Suspect]
     Active Substance: IRINOTECAN
     Indication: Adenocarcinoma of colon
     Dosage: 275 MILLIGRAM, TOTAL (SINGLE)
     Route: 042
     Dates: start: 20231025, end: 20231025
  2. IRINOTECAN [Suspect]
     Active Substance: IRINOTECAN
     Indication: Neoplasm
  3. FLUOROURACIL [Suspect]
     Active Substance: FLUOROURACIL
     Indication: Adenocarcinoma of colon
     Dosage: 3695 MILLIGRAM, SINGLE (1 TOTAL)
     Route: 042
     Dates: start: 20231025, end: 20231027
  4. LEUCOVORIN [Suspect]
     Active Substance: LEUCOVORIN\LEUCOVORIN CALCIUM
     Indication: Adenocarcinoma of colon
     Dosage: 615 MILLIGRAM, TOTAL (SINGLE)
     Route: 042
     Dates: start: 20231025, end: 20231025
  5. RP-6306 [Suspect]
     Active Substance: RP-6306
     Indication: Adenocarcinoma of colon
     Dosage: 180 MILLIGRAM, ONCE A DAY
     Route: 048
     Dates: start: 20231025, end: 20231027

REACTIONS (1)
  - Pancreatitis [Recovered/Resolved]

NARRATIVE: CASE EVENT DATE: 20231028
